FAERS Safety Report 22379499 (Version 1)
Quarter: 2023Q2

REPORT INFORMATION
  Report Type: Spontaneous
  Country: JP (occurrence: JP)
  Receive Date: 20230529
  Receipt Date: 20230529
  Transmission Date: 20230721
  Serious: Yes (Hospitalization)
  Sender: FDA-Public Use
  Company Number: JP-TAKEDA-2023TJP006524

PATIENT
  Age: 5 Year
  Sex: Male

DRUGS (2)
  1. MIDAZOLAM HYDROCHLORIDE [Suspect]
     Active Substance: MIDAZOLAM HYDROCHLORIDE
     Indication: Status epilepticus
     Dosage: 7.5 MILLIGRAM
     Route: 002
  2. DIAZEPAM [Concomitant]
     Active Substance: DIAZEPAM
     Indication: Pyrexia
     Dosage: UNK
     Route: 065

REACTIONS (1)
  - Oxygen saturation decreased [Recovered/Resolved]
